FAERS Safety Report 9507036 (Version 1)
Quarter: 2013Q1

REPORT INFORMATION
  Report Type: Spontaneous
  Country: US (occurrence: None)
  Receive Date: 20130305
  Receipt Date: 20130305
  Transmission Date: 20140127
  Serious: Yes (Disabling, Other)
  Sender: FDA-Public Use
  Company Number: 163-21880-12051336

PATIENT
  Age: 71 Year
  Sex: Female

DRUGS (8)
  1. REVLIMID (LENALIDOMIDE) (25 MILLIGRAM, CAPSULES) [Suspect]
     Indication: PLASMA CELL MYELOMA
     Dosage: 25 MG, DAILY FOR 21 DAYS, PO
     Route: 048
     Dates: start: 20100928, end: 20110404
  2. DEXAMETHASONE [Suspect]
     Indication: PRODUCT USED FOR UNKNOWN INDICATION
     Dates: start: 20100928
  3. ZOVIRAX (ACICLOVIR) (UNKNOWN) [Concomitant]
  4. CELEBREX (CELECOXIB) (UNKNOWN) [Concomitant]
  5. COLCRYS (COLCHICINE) (UNKNOWN) [Concomitant]
  6. ALLOPURINOL (ALLOPURINOL) (UNKNOWN) [Concomitant]
  7. ACTONEL [Suspect]
  8. OSCAL (CALCIUM CARBONATE) (UNKNOWN) [Concomitant]

REACTIONS (2)
  - Asthenia [None]
  - Swelling [None]
